FAERS Safety Report 10599136 (Version 2)
Quarter: 2015Q1

REPORT INFORMATION
  Report Type: Spontaneous
  Country: US (occurrence: US)
  Receive Date: 20141121
  Receipt Date: 20150225
  Transmission Date: 20150720
  Serious: No
  Sender: FDA-Public Use
  Company Number: US-VIVUS-2014V1000535

PATIENT
  Age: 76 Year
  Sex: Male
  Weight: 70.37 kg

DRUGS (5)
  1. STENDRA [Suspect]
     Active Substance: AVANAFIL
     Indication: ERECTILE DYSFUNCTION
     Dosage: 100 MG
     Route: 048
     Dates: start: 20140921
  2. LOSARTAN [Concomitant]
     Active Substance: LOSARTAN
  3. DICLOFENAC [Concomitant]
     Active Substance: DICLOFENAC
  4. BYSTOLIC [Concomitant]
     Active Substance: NEBIVOLOL HYDROCHLORIDE
  5. ALLOPURINOL. [Concomitant]
     Active Substance: ALLOPURINOL

REACTIONS (1)
  - Drug ineffective [Unknown]

NARRATIVE: CASE EVENT DATE: 20140921
